FAERS Safety Report 5934973-2 (Version None)
Quarter: 2008Q4

REPORT INFORMATION
  Report Type: 
  Country: None (occurrence: None)
  Receive Date: 20081028
  Receipt Date: 20081014
  Transmission Date: 20090506
  Serious: Yes (Hospitalization)
  Sender: FDA-Public Use
  Company Number: 2008SP002498

PATIENT
  Age: 50 Year
  Sex: Female

DRUGS (16)
  1. XOPENEX [Suspect]
     Indication: ASTHMA
     Dosage: 1.25 MG/3ML; ; INHALATION, 1.25 MG/3ML; Q4H; INHALATION, 1.25 MG/3ML; PRN; INHALATION
     Route: 055
     Dates: start: 20040101
  2. XOPENEX [Suspect]
     Indication: ASTHMA
     Dosage: 1.25 MG/3ML; ; INHALATION, 1.25 MG/3ML; Q4H; INHALATION, 1.25 MG/3ML; PRN; INHALATION
     Route: 055
     Dates: start: 20060101
  3. XOPENEX [Suspect]
     Indication: ASTHMA
     Dosage: 1.25 MG/3ML; ; INHALATION, 1.25 MG/3ML; Q4H; INHALATION, 1.25 MG/3ML; PRN; INHALATION
     Route: 055
     Dates: start: 20080821
  4. XOPENEX HFA [Suspect]
     Indication: ASTHMA
     Dosage: 90 UG; PRN; INHALATION
     Route: 055
     Dates: start: 20060101
  5. PREDNISONE TAB [Suspect]
     Dates: start: 20080821, end: 20080906
  6. PREDNISONE TAB [Suspect]
     Dates: start: 20040101
  7. METHYLPREDNISOLONE 16MG TAB [Suspect]
     Dosage: ; INTRAVENOUS
     Route: 042
     Dates: start: 20040101
  8. ZYPREXA [Suspect]
     Dates: start: 20080901, end: 20080901
  9. SEROQUEL [Suspect]
     Dosage: ; 1X;
     Dates: start: 20080901, end: 20080901
  10. DEPAKOTE [Suspect]
     Dates: start: 20080101, end: 20080101
  11. FLONASE [Concomitant]
  12. ADVAIR DISKUS 100/50 [Concomitant]
  13. ATROVENT [Concomitant]
  14. SINGULAIR /01362602/ [Concomitant]
  15. RESTORIL /00393701/ [Concomitant]
  16. ALBUTEROL [Concomitant]

REACTIONS (22)
  - ABNORMAL BEHAVIOUR [None]
  - ASTHMA [None]
  - BLOOD ELECTROLYTES ABNORMAL [None]
  - BRONCHITIS [None]
  - CHEST X-RAY ABNORMAL [None]
  - CLOSTRIDIAL INFECTION [None]
  - DIARRHOEA [None]
  - FEELING ABNORMAL [None]
  - HALLUCINATION [None]
  - HALLUCINATION, VISUAL [None]
  - INSOMNIA [None]
  - LOCALISED INFECTION [None]
  - LOSS OF EMPLOYMENT [None]
  - LUNG DISORDER [None]
  - MANIA [None]
  - NAUSEA [None]
  - PNEUMONIA [None]
  - PSYCHOMOTOR HYPERACTIVITY [None]
  - PYREXIA [None]
  - SOMNAMBULISM [None]
  - SPEECH DISORDER [None]
  - TREATMENT NONCOMPLIANCE [None]
